FAERS Safety Report 12277888 (Version 1)
Quarter: 2016Q2

REPORT INFORMATION
  Report Type: Spontaneous
  Country: CA (occurrence: CA)
  Receive Date: 20160418
  Receipt Date: 20160418
  Transmission Date: 20160815
  Serious: Yes (Hospitalization)
  Sender: FDA-Public Use
  Company Number: CA-ELI_LILLY_AND_COMPANY-CA201604001482

PATIENT
  Age: 27 Year
  Sex: Male
  Weight: 103 kg

DRUGS (1)
  1. STRATTERA [Suspect]
     Active Substance: ATOMOXETINE HYDROCHLORIDE
     Indication: ATTENTION DEFICIT/HYPERACTIVITY DISORDER
     Dosage: 1 DF, QD
     Route: 048

REACTIONS (14)
  - Mental impairment [Recovered/Resolved]
  - Anger [Recovered/Resolved]
  - Impulsive behaviour [Recovered/Resolved]
  - Narcissistic personality disorder [Recovered/Resolved]
  - Suicidal ideation [Recovered/Resolved]
  - Psychomotor hyperactivity [Recovered/Resolved]
  - Psychopathic personality [Recovered/Resolved]
  - Feeling abnormal [Recovered/Resolved]
  - Abnormal behaviour [Recovered/Resolved]
  - Visual impairment [Recovered/Resolved]
  - Dissociation [Recovered/Resolved]
  - Memory impairment [Recovered/Resolved]
  - Tachyphrenia [Recovered/Resolved]
  - Aggression [Recovered/Resolved]
